FAERS Safety Report 22169487 (Version 2)
Quarter: 2023Q2

REPORT INFORMATION
  Report Type: Spontaneous
  Country: US (occurrence: US)
  Receive Date: 20230404
  Receipt Date: 20230427
  Transmission Date: 20230721
  Serious: No
  Sender: FDA-Public Use
  Company Number: US-ALK-ABELLO A/S-2023AA000999

PATIENT

DRUGS (4)
  1. CARYA ILLINOINENSIS POLLEN [Suspect]
     Active Substance: CARYA ILLINOINENSIS POLLEN
     Indication: Skin test
  2. DAE BULK 766 [Concomitant]
  3. DAE BULK 765 [Concomitant]
  4. AUVI-Q [Concomitant]
     Active Substance: EPINEPHRINE
     Indication: Food allergy

REACTIONS (2)
  - False negative investigation result [Unknown]
  - False negative investigation result [Unknown]

NARRATIVE: CASE EVENT DATE: 20221220
